FAERS Safety Report 14381260 (Version 1)
Quarter: 2018Q1

REPORT INFORMATION
  Report Type: Spontaneous
  Country: PE (occurrence: PE)
  Receive Date: 20180112
  Receipt Date: 20180112
  Transmission Date: 20180509
  Serious: Yes (Other)
  Sender: FDA-Public Use
  Company Number: PE-GLAXOSMITHKLINE-PE2018GSK003179

PATIENT
  Sex: Female

DRUGS (1)
  1. SERETIDE [Suspect]
     Active Substance: FLUTICASONE PROPIONATE\SALMETEROL XINAFOATE
     Indication: ASTHMA
     Dosage: 250 UG(PUFF(S)), BID
     Route: 055

REACTIONS (3)
  - Diaphragmatic hernia [Recovered/Resolved]
  - Dyspnoea [Recovered/Resolved]
  - Diaphragmatic rupture [Recovered/Resolved]
